FAERS Safety Report 14677825 (Version 2)
Quarter: 2018Q2

REPORT INFORMATION
  Report Type: Report from Study
  Country: None (occurrence: US)
  Receive Date: 20180326
  Receipt Date: 20180406
  Transmission Date: 20180711
  Serious: Yes (Other)
  Sender: FDA-Public Use
  Company Number: US-BIOGEN-2018BV000134

PATIENT
  Sex: Male
  Weight: 13.2 kg

DRUGS (6)
  1. ACETAMINOPHEN. [Concomitant]
     Active Substance: ACETAMINOPHEN
     Indication: DISCOMFORT
  2. POLY-VI-SOL [Concomitant]
     Active Substance: VITAMINS
     Indication: VITAMIN SUPPLEMENTATION
     Route: 048
     Dates: start: 20160823
  3. ANTIHEMOPHILIC FACTOR (RECOMBINANT), FC FUSION PROTEIN [Suspect]
     Active Substance: (1-743)-(1638-2332)-BLOOD-COAGULATION FACTOR VIII (SYNTHETIC HUMAN) FUSION PROTEIN WITH IMMUNOGLOBULIN G1 (SYNTHETIC HUMAN FC DOMAIN FRAGMENT), (1444-6^),(1447-9^)-BIS(DISULFIDE) WITH IMMUNOGLOBULIN G1 (SYNTHETIC HUMAN FC DOMAIN FRAGMENT)
     Dosage: EPISODIC
     Route: 042
     Dates: start: 20170317
  4. ACETAMINOPHEN. [Concomitant]
     Active Substance: ACETAMINOPHEN
     Indication: PAIN
     Dosage: 5 ML
     Route: 048
     Dates: start: 20170210
  5. ANTIHEMOPHILIC FACTOR (RECOMBINANT), FC FUSION PROTEIN [Suspect]
     Active Substance: (1-743)-(1638-2332)-BLOOD-COAGULATION FACTOR VIII (SYNTHETIC HUMAN) FUSION PROTEIN WITH IMMUNOGLOBULIN G1 (SYNTHETIC HUMAN FC DOMAIN FRAGMENT), (1444-6^),(1447-9^)-BIS(DISULFIDE) WITH IMMUNOGLOBULIN G1 (SYNTHETIC HUMAN FC DOMAIN FRAGMENT)
     Indication: HAEMOPHILIA
     Dosage: EPISODIC
     Route: 042
     Dates: start: 20170317
  6. ANTIHEMOPHILIC FACTOR (RECOMBINANT), FC FUSION PROTEIN [Suspect]
     Active Substance: (1-743)-(1638-2332)-BLOOD-COAGULATION FACTOR VIII (SYNTHETIC HUMAN) FUSION PROTEIN WITH IMMUNOGLOBULIN G1 (SYNTHETIC HUMAN FC DOMAIN FRAGMENT), (1444-6^),(1447-9^)-BIS(DISULFIDE) WITH IMMUNOGLOBULIN G1 (SYNTHETIC HUMAN FC DOMAIN FRAGMENT)
     Route: 042
     Dates: start: 20171218

REACTIONS (1)
  - Factor VIII inhibition [Not Recovered/Not Resolved]

NARRATIVE: CASE EVENT DATE: 20180208
